FAERS Safety Report 6433342-9 (Version None)
Quarter: 2009Q4

REPORT INFORMATION
  Report Type: 
  Country: None (occurrence: None)
  Receive Date: 20091109
  Receipt Date: 20091030
  Transmission Date: 20100525
  Serious: Yes (Hospitalization)
  Sender: FDA-Public Use
  Company Number: US-ABBOTT-09P-163-0605957-00

PATIENT
  Sex: Male

DRUGS (11)
  1. HUMIRA [Suspect]
     Indication: RHEUMATOID ARTHRITIS
     Dates: start: 20030101
  2. LANTUS [Concomitant]
     Indication: DIABETES MELLITUS
  3. PROSCAR [Concomitant]
     Indication: BENIGN PROSTATIC HYPERPLASIA
  4. FLOMAX [Concomitant]
     Indication: DRUG USE FOR UNKNOWN INDICATION
  5. KLONOPIN [Concomitant]
     Indication: DRUG USE FOR UNKNOWN INDICATION
  6. WELLBUTRIN [Concomitant]
     Indication: DRUG USE FOR UNKNOWN INDICATION
  7. DURAGESIC-100 [Concomitant]
     Indication: PAIN
  8. PEPCID [Concomitant]
     Indication: GASTROOESOPHAGEAL REFLUX DISEASE
  9. NORVASC [Concomitant]
     Indication: HYPERTENSION
  10. LIPITOR [Concomitant]
     Indication: HYPERCHOLESTEROLAEMIA
  11. AMITIZA [Concomitant]
     Indication: IRRITABLE BOWEL SYNDROME

REACTIONS (5)
  - BLOOD PRESSURE INCREASED [None]
  - DIABETIC NEUROPATHY [None]
  - DYSPNOEA [None]
  - MUSCLE STRAIN [None]
  - OEDEMA [None]
